FAERS Safety Report 7223234-X (Version None)
Quarter: 2011Q1

REPORT INFORMATION
  Report Type: 
  Country: None (occurrence: None)
  Receive Date: 20110112
  Receipt Date: 20100323
  Transmission Date: 20110831
  Serious: No
  Sender: FDA-Public Use
  Company Number: US-ALLERGAN-1003478US

PATIENT
  Age: 65 Year
  Sex: Female

DRUGS (4)
  1. MURO 128 [Concomitant]
     Dosage: UNK
  2. RESTASIS [Suspect]
     Indication: DRY EYE
     Dosage: 1 GTT, BID
     Route: 047
  3. REFRESH TEARS [Concomitant]
     Dosage: UNK
     Route: 047
  4. RESTASIS [Suspect]
     Dosage: 1 GTT, QPM
     Route: 047

REACTIONS (1)
  - EYELIDS PRURITUS [None]
